FAERS Safety Report 7403820-4 (Version None)
Quarter: 2011Q2

REPORT INFORMATION
  Report Type: 
  Country: None (occurrence: None)
  Receive Date: 20110408
  Receipt Date: 20110330
  Transmission Date: 20111010
  Serious: Yes (Other)
  Sender: FDA-Public Use
  Company Number: US-ASTRAZENECA-2011SE18309

PATIENT
  Age: 67 Year
  Sex: Male

DRUGS (1)
  1. NEXIUM [Suspect]
     Route: 048

REACTIONS (4)
  - LOSS OF CONSCIOUSNESS [None]
  - ASPIRATION [None]
  - DRUG DOSE OMISSION [None]
  - HYPOXIA [None]
